FAERS Safety Report 7346238-5 (Version None)
Quarter: 2011Q1

REPORT INFORMATION
  Report Type: 
  Country: None (occurrence: None)
  Receive Date: 20110311
  Receipt Date: 20110309
  Transmission Date: 20110831
  Serious: Yes (Other)
  Sender: FDA-Public Use
  Company Number: US-PFIZER INC-2011051532

PATIENT
  Sex: Female
  Weight: 57.596 kg

DRUGS (4)
  1. VALIUM [Concomitant]
     Indication: ANXIETY
     Dosage: 10 MG, AS NEEDED
     Route: 048
  2. VALIUM [Concomitant]
     Indication: PANIC ATTACK
  3. HYDROCODONE [Concomitant]
     Dosage: 650 MG, AS NEEDED
     Route: 048
  4. CHANTIX [Suspect]
     Indication: SMOKING CESSATION THERAPY
     Dosage: UNK
     Route: 048
     Dates: start: 20110101, end: 20110201

REACTIONS (3)
  - HALLUCINATION [None]
  - AMNESIA [None]
  - ABNORMAL DREAMS [None]
